FAERS Safety Report 21248625 (Version 4)
Quarter: 2022Q4

REPORT INFORMATION
  Report Type: Report from Study
  Country: DE (occurrence: DE)
  Receive Date: 20220824
  Receipt Date: 20221207
  Transmission Date: 20230113
  Serious: Yes (Hospitalization)
  Sender: FDA-Public Use
  Company Number: DE-NOVARTISPH-NVSC2022DE073177

PATIENT
  Age: 60 Year
  Sex: Male
  Weight: 82.6 kg

DRUGS (16)
  1. DICLOFENAC [Suspect]
     Active Substance: DICLOFENAC
     Indication: Rheumatoid arthritis
     Dosage: 75 MG
     Route: 048
     Dates: start: 1980, end: 20211230
  2. IANALUMAB [Suspect]
     Active Substance: IANALUMAB
     Indication: Rheumatoid arthritis
     Dosage: 300 MG, ONCE/SINGLE
     Route: 058
     Dates: start: 20220106
  3. PREDNISOLONE [Suspect]
     Active Substance: PREDNISOLONE
     Indication: Rheumatoid arthritis
     Dosage: 5 MG, DAILY
     Route: 048
     Dates: start: 1980, end: 20220527
  4. PREDNISOLONE [Suspect]
     Active Substance: PREDNISOLONE
     Dosage: 10 MG, QW
     Route: 048
     Dates: start: 20220614
  5. METHOTREXATE SODIUM [Suspect]
     Active Substance: METHOTREXATE SODIUM
     Indication: Rheumatoid arthritis
     Dosage: 10 MG, QW
     Route: 058
     Dates: start: 2011
  6. PANTOPRAZOLE SODIUM [Concomitant]
     Active Substance: PANTOPRAZOLE SODIUM
     Indication: Large intestinal ulcer
     Dosage: 40 MG, QD
     Route: 016
     Dates: start: 20220317
  7. HYDROCHLOROTHIAZIDE [Concomitant]
     Active Substance: HYDROCHLOROTHIAZIDE
     Indication: Hypertension
     Dosage: 25 MG, QD
     Route: 048
     Dates: start: 2014
  8. METFORMIN [Concomitant]
     Active Substance: METFORMIN HYDROCHLORIDE
     Indication: Type 2 diabetes mellitus
     Dosage: 500 MG, BID
     Route: 048
     Dates: start: 2011, end: 20220808
  9. METOPROLOL SUCCINATE [Concomitant]
     Active Substance: METOPROLOL SUCCINATE
     Indication: Hypertension
     Dosage: 23.8 MG, QD
     Route: 048
     Dates: start: 202111
  10. INDOMETHACIN [Concomitant]
     Active Substance: INDOMETHACIN
     Indication: Rheumatoid arthritis
     Dosage: 50 MG, PRN
     Route: 065
     Dates: start: 20220317, end: 20220319
  11. TORSEMIDE [Concomitant]
     Active Substance: TORSEMIDE
     Indication: Hypertension
     Dosage: 10 MG, QD
     Route: 048
     Dates: start: 2019, end: 20220217
  12. TORSEMIDE [Concomitant]
     Active Substance: TORSEMIDE
     Dosage: 10 MG, QD
     Route: 048
     Dates: start: 20220528
  13. ETORICOXIB [Concomitant]
     Active Substance: ETORICOXIB
     Indication: Rheumatoid arthritis
     Dosage: 90 MG, QD
     Route: 048
     Dates: start: 20220614, end: 20220630
  14. AMOXICILLIN [Concomitant]
     Active Substance: AMOXICILLIN
     Indication: Infection prophylaxis
     Dosage: 1000 MG, TID
     Route: 048
     Dates: start: 20220528
  15. UNACID [Concomitant]
     Indication: Infection prophylaxis
     Dosage: 3 G, TID
     Route: 042
     Dates: start: 20220519, end: 20220527
  16. METAMIZOL [Concomitant]
     Active Substance: METAMIZOLE SODIUM
     Indication: Rheumatoid arthritis
     Dosage: 500 MG, AS NEEDED
     Route: 048
     Dates: start: 20211231, end: 20220825

REACTIONS (1)
  - Large intestinal ulcer [Recovered/Resolved]

NARRATIVE: CASE EVENT DATE: 20220317
